FAERS Safety Report 14756615 (Version 1)
Quarter: 2018Q2

REPORT INFORMATION
  Report Type: Spontaneous
  Country: US (occurrence: US)
  Receive Date: 20180413
  Receipt Date: 20180413
  Transmission Date: 20180711
  Serious: No
  Sender: FDA-Public Use
  Company Number: US-GLAXOSMITHKLINE-US2018GSK062124

PATIENT
  Age: 26 Year
  Sex: Female

DRUGS (1)
  1. LAMICTAL XR [Suspect]
     Active Substance: LAMOTRIGINE
     Indication: SEIZURE
     Dosage: 300 MG, UNK
     Route: 048
     Dates: start: 201802

REACTIONS (1)
  - Drug ineffective [Unknown]

NARRATIVE: CASE EVENT DATE: 20180410
